FAERS Safety Report 21531351 (Version 1)
Quarter: 2022Q4

REPORT INFORMATION
  Report Type: Spontaneous
  Country: US (occurrence: None)
  Receive Date: 20221031
  Receipt Date: 20221031
  Transmission Date: 20230113
  Serious: No
  Sender: FDA-Public Use
  Company Number: 2022A345210

PATIENT

DRUGS (1)
  1. FARXIGA [Suspect]
     Active Substance: DAPAGLIFLOZIN PROPANEDIOL
     Route: 048

REACTIONS (14)
  - Dehydration [Unknown]
  - Diabetes mellitus inadequate control [Unknown]
  - Blood glucose increased [Unknown]
  - Blood electrolytes abnormal [Unknown]
  - Blood calcium decreased [Unknown]
  - Blood potassium decreased [Unknown]
  - Fluid retention [Unknown]
  - Swelling [Unknown]
  - Dry eye [Unknown]
  - Protein deficiency [Unknown]
  - Bone pain [Unknown]
  - Constipation [Unknown]
  - Diarrhoea [Unknown]
  - Pollakiuria [Unknown]
